FAERS Safety Report 7779128-4 (Version None)
Quarter: 2011Q3

REPORT INFORMATION
  Report Type: 
  Country: None (occurrence: None)
  Receive Date: 20110926
  Receipt Date: 20110920
  Transmission Date: 20111222
  Serious: Yes (Other)
  Sender: FDA-Public Use
  Company Number: GXBR2011US04748

PATIENT
  Sex: Male

DRUGS (1)
  1. ISONIAZID TAB [Suspect]
     Indication: TUBERCULOSIS
     Dosage: UNK MG, UNK
     Dates: start: 20090914

REACTIONS (12)
  - HEPATIC FAILURE [None]
  - MALAISE [None]
  - SCLERAL DISCOLOURATION [None]
  - GALLBLADDER INJURY [None]
  - MULTI-ORGAN FAILURE [None]
  - LIVER INJURY [None]
  - PAIN [None]
  - BLINDNESS [None]
  - GALLBLADDER NON-FUNCTIONING [None]
  - ANXIETY [None]
  - SKIN DISCOLOURATION [None]
  - EMOTIONAL DISTRESS [None]
